FAERS Safety Report 13050426 (Version 2)
Quarter: 2017Q1

REPORT INFORMATION
  Report Type: Report from Study
  Country: US (occurrence: US)
  Receive Date: 20161221
  Receipt Date: 20170215
  Transmission Date: 20170428
  Serious: Yes (Death, Hospitalization)
  Sender: FDA-Public Use
  Company Number: PHEH2016US033020

PATIENT
  Age: 66 Year
  Sex: Female

DRUGS (1)
  1. MYFORTIC [Suspect]
     Active Substance: MYCOPHENOLATE SODIUM
     Indication: PRODUCT USED FOR UNKNOWN INDICATION
     Route: 065

REACTIONS (4)
  - Gastrointestinal disorder [Unknown]
  - Obstruction [Not Recovered/Not Resolved]
  - Death [Fatal]
  - Asthenia [Unknown]

NARRATIVE: CASE EVENT DATE: 20160831
